FAERS Safety Report 8985671 (Version 3)
Quarter: 2013Q1

REPORT INFORMATION
  Report Type: Spontaneous
  Country: JP (occurrence: JP)
  Receive Date: 20121226
  Receipt Date: 20130222
  Transmission Date: 20140127
  Serious: Yes (Other)
  Sender: FDA-Public Use
  Company Number: JP-TEVA-377460ISR

PATIENT
  Sex: Female

DRUGS (4)
  1. CISPLATIN [Suspect]
  2. ADRIAMYCIN [Suspect]
  3. METHOTREXATE SODIUM [Suspect]
  4. VINBLASTINE SULFATE [Suspect]

REACTIONS (1)
  - Duodenal ulcer [Not Recovered/Not Resolved]
